FAERS Safety Report 24908312 (Version 1)
Quarter: 2025Q1

REPORT INFORMATION
  Report Type: Spontaneous
  Country: DK (occurrence: DK)
  Receive Date: 20250131
  Receipt Date: 20250131
  Transmission Date: 20250409
  Serious: Yes (Hospitalization, Other)
  Sender: TEVA
  Company Number: None

PATIENT
  Age: 85 Year
  Sex: Male
  Weight: 107 kg

DRUGS (21)
  1. TRANDOLAPRIL [Interacting]
     Active Substance: TRANDOLAPRIL
     Indication: Hypertension
     Dosage: TRANDOLAPRIL ^TEVA^
     Route: 065
     Dates: start: 20221020
  2. BISACODYL [Concomitant]
     Active Substance: BISACODYL
     Indication: Constipation
     Route: 065
     Dates: start: 20201007
  3. DUTASTERIDE [Concomitant]
     Active Substance: DUTASTERIDE
     Indication: Dysuria
     Route: 065
     Dates: start: 20220312
  4. ACETAMINOPHEN [Concomitant]
     Active Substance: ACETAMINOPHEN
     Indication: Pain
     Route: 065
     Dates: start: 20210902
  5. MIANSERIN HYDROCHLORIDE [Concomitant]
     Active Substance: MIANSERIN HYDROCHLORIDE
     Indication: Nervous system disorder
     Route: 065
     Dates: start: 20220311
  6. PRAMIPEXOLE [Concomitant]
     Active Substance: PRAMIPEXOLE
     Indication: Restless legs syndrome
     Route: 065
     Dates: start: 20240722
  7. ALLOPURINOL [Concomitant]
     Active Substance: ALLOPURINOL
     Indication: Gouty arthritis
     Route: 065
     Dates: start: 20220331
  8. BUDESONIDE FORMOTEROL FUMARATE DIHYDRATE [Concomitant]
     Indication: Lung disorder
     Route: 065
     Dates: start: 20160627
  9. APIXABAN [Concomitant]
     Active Substance: APIXABAN
     Indication: Thrombosis prophylaxis
     Route: 065
     Dates: start: 20221019
  10. MAGNESIUM [Concomitant]
     Active Substance: MAGNESIUM
     Indication: Constipation
     Route: 065
     Dates: start: 20240925
  11. SIMVASTATINUM [Concomitant]
     Indication: Hypercholesterolaemia
     Route: 065
     Dates: start: 20140805
  12. EPLERENONE [Concomitant]
     Active Substance: EPLERENONE
     Indication: Diuretic therapy
     Route: 065
     Dates: start: 20221018
  13. GLUCOSAMINE [Concomitant]
     Active Substance: GLUCOSAMINE
     Indication: Pain
     Dosage: STRENGHT:400MG, 392.6 MG
     Route: 065
     Dates: start: 20160628
  14. MELATONIN [Concomitant]
     Active Substance: MELATONIN
     Indication: Insomnia
     Route: 065
     Dates: start: 20230203
  15. LACTULOSE [Concomitant]
     Active Substance: LACTULOSE
     Indication: Constipation
     Route: 065
     Dates: start: 20220312
  16. MOVICOL [Concomitant]
     Active Substance: POLYETHYLENE GLYCOL 3350\POTASSIUM CHLORIDE\SODIUM BICARBONATE\SODIUM CHLORIDE
     Indication: Constipation
     Dosage: STRENGHT: UNKNOWN
     Route: 065
     Dates: start: 20220311
  17. MIKTOSAN [Concomitant]
     Indication: Dysuria
     Route: 065
     Dates: start: 20200806
  18. ASPIRIN\CODEINE PHOSPHATE\MAGNESIUM OXIDE [Interacting]
     Active Substance: ASPIRIN\CODEINE PHOSPHATE\MAGNESIUM OXIDE
     Indication: Product used for unknown indication
     Dosage: KODIMAGNYL IKKE-STOPPENDE ^DAK^
     Route: 048
     Dates: start: 20241016, end: 20241030
  19. BUMETANIDE [Interacting]
     Active Substance: BUMETANIDE
     Indication: Diuretic therapy
     Route: 065
     Dates: start: 20221018
  20. MIRABEGRON [Concomitant]
     Active Substance: MIRABEGRON
     Indication: Hypertonic bladder
     Route: 065
     Dates: start: 20230829
  21. FERROUS SULFATE [Concomitant]
     Active Substance: FERROUS SULFATE
     Indication: Mineral supplementation
     Route: 065
     Dates: start: 20240722

REACTIONS (5)
  - Gastrointestinal haemorrhage [Unknown]
  - Anaemia [Unknown]
  - Renal impairment [Unknown]
  - Fatigue [Unknown]
  - Drug interaction [Unknown]

NARRATIVE: CASE EVENT DATE: 20241001
